FAERS Safety Report 21951745 (Version 9)
Quarter: 2025Q1

REPORT INFORMATION
  Report Type: Report from Study
  Country: DE (occurrence: DE)
  Receive Date: 20230203
  Receipt Date: 20250303
  Transmission Date: 20250409
  Serious: Yes (Other)
  Sender: TAKEDA
  Company Number: DE-TAKEDA-2022TUS101247

PATIENT
  Age: 45 Year
  Sex: Female
  Weight: 119 kg

DRUGS (53)
  1. PARATHYROID HORMONE [Suspect]
     Active Substance: PARATHYROID HORMONE
     Indication: Hypoparathyroidism
     Dosage: 50 MICROGRAM, QD
     Dates: start: 20180823, end: 20181219
  2. PARATHYROID HORMONE [Suspect]
     Active Substance: PARATHYROID HORMONE
     Dosage: 75 MICROGRAM, QD
     Dates: start: 20181220, end: 20190116
  3. PARATHYROID HORMONE [Suspect]
     Active Substance: PARATHYROID HORMONE
     Dosage: 100 MICROGRAM, QD
     Dates: start: 20190117, end: 20190117
  4. PARATHYROID HORMONE [Suspect]
     Active Substance: PARATHYROID HORMONE
     Dosage: 100 MICROGRAM, QD
     Dates: start: 20190118, end: 20190130
  5. PARATHYROID HORMONE [Suspect]
     Active Substance: PARATHYROID HORMONE
     Dosage: 75 MICROGRAM, QD
     Dates: start: 20190131, end: 20190313
  6. PARATHYROID HORMONE [Suspect]
     Active Substance: PARATHYROID HORMONE
     Dosage: 100 MICROGRAM, QD
     Dates: start: 20190314, end: 20190401
  7. PARATHYROID HORMONE [Suspect]
     Active Substance: PARATHYROID HORMONE
     Dosage: 62 MICROGRAM, QD
     Dates: start: 20190402, end: 20190406
  8. PARATHYROID HORMONE [Suspect]
     Active Substance: PARATHYROID HORMONE
     Dosage: 75 MICROGRAM, QD
     Dates: start: 20190407, end: 20190411
  9. PARATHYROID HORMONE [Suspect]
     Active Substance: PARATHYROID HORMONE
     Dosage: 75 MICROGRAM, QD
     Dates: start: 20190412, end: 20190430
  10. PARATHYROID HORMONE [Suspect]
     Active Substance: PARATHYROID HORMONE
     Dosage: 77.7 MICROGRAM, QD
     Dates: start: 20190501, end: 20190930
  11. PARATHYROID HORMONE [Suspect]
     Active Substance: PARATHYROID HORMONE
     Dosage: 100 MICROGRAM, QD
     Dates: start: 20191001, end: 20200309
  12. PARATHYROID HORMONE [Suspect]
     Active Substance: PARATHYROID HORMONE
     Dosage: 107 MICROGRAM, QD
     Dates: start: 20200310, end: 20200323
  13. PARATHYROID HORMONE [Suspect]
     Active Substance: PARATHYROID HORMONE
     Dosage: 133.3 MICROGRAM, QD
     Dates: start: 20200324, end: 20201008
  14. PARATHYROID HORMONE [Suspect]
     Active Substance: PARATHYROID HORMONE
     Dosage: 122.1 MICROGRAM, QD
     Dates: start: 20201009, end: 20210212
  15. PARATHYROID HORMONE [Suspect]
     Active Substance: PARATHYROID HORMONE
     Dosage: 111 MICROGRAM, QD
     Dates: start: 20210213, end: 20210217
  16. PARATHYROID HORMONE [Suspect]
     Active Substance: PARATHYROID HORMONE
     Dosage: 133.3 MICROGRAM, QD
     Dates: start: 20210218, end: 20220314
  17. PARATHYROID HORMONE [Suspect]
     Active Substance: PARATHYROID HORMONE
     Dosage: 100 MICROGRAM, QD
     Dates: start: 20220314, end: 20221209
  18. PARATHYROID HORMONE [Suspect]
     Active Substance: PARATHYROID HORMONE
  19. PARATHYROID HORMONE [Suspect]
     Active Substance: PARATHYROID HORMONE
     Dosage: 75 MICROGRAM, QD
     Dates: start: 20221210
  20. PARATHYROID HORMONE [Suspect]
     Active Substance: PARATHYROID HORMONE
     Dosage: 100 MICROGRAM, QD
     Dates: start: 20220314, end: 20221209
  21. PARATHYROID HORMONE [Suspect]
     Active Substance: PARATHYROID HORMONE
     Dosage: 50 MICROGRAM, Q72H
     Dates: start: 202212, end: 202212
  22. PARATHYROID HORMONE [Suspect]
     Active Substance: PARATHYROID HORMONE
     Dosage: 75 MICROGRAM, QD
     Dates: start: 20221210
  23. LEVOTHYROXINE SODIUM [Concomitant]
     Active Substance: LEVOTHYROXINE SODIUM
     Indication: Hypothyroidism
  24. BISOPROLOL [Concomitant]
     Active Substance: BISOPROLOL
     Indication: Tachycardia
     Dates: start: 20190624, end: 20191215
  25. BISOPROLOL [Concomitant]
     Active Substance: BISOPROLOL
  26. LORAZEPAM [Concomitant]
     Active Substance: LORAZEPAM
     Indication: Hypocalcaemia
  27. DESOGESTREL [Concomitant]
     Active Substance: DESOGESTREL
     Indication: Contraception
     Dates: start: 20190624, end: 20190811
  28. DIGOXIN [Concomitant]
     Active Substance: DIGOXIN
     Indication: Tachycardia
     Dates: start: 20191216, end: 20200206
  29. ARIXTRA [Concomitant]
     Active Substance: FONDAPARINUX SODIUM
     Indication: Superficial vein thrombosis
     Dates: start: 20210903, end: 20210924
  30. SPIRONOLACTONE [Concomitant]
     Active Substance: SPIRONOLACTONE
     Indication: Diuretic therapy
     Dates: start: 20210708, end: 20220721
  31. SPIRONOLACTONE [Concomitant]
     Active Substance: SPIRONOLACTONE
     Indication: Hypertension
  32. PANTOPRAZOLE SODIUM [Concomitant]
     Active Substance: PANTOPRAZOLE SODIUM
     Indication: Gastric ulcer
     Dates: start: 20220624, end: 20220826
  33. TRAMADOL [Concomitant]
     Active Substance: TRAMADOL
     Indication: Pain
     Dates: start: 20190624, end: 20221009
  34. TRAMADOL [Concomitant]
     Active Substance: TRAMADOL
  35. METAMIZOL [Concomitant]
     Active Substance: METAMIZOLE SODIUM
     Indication: Pain
     Dates: start: 20220721, end: 20220825
  36. TRIAMTERENE [Concomitant]
     Active Substance: TRIAMTERENE
     Indication: Tachycardia
     Dates: start: 20201013, end: 20220720
  37. CYANOCOBALAMIN\FOLIC ACID\PYRIDOXINE HYDROCHLORIDE [Concomitant]
     Active Substance: CYANOCOBALAMIN\FOLIC ACID\PYRIDOXINE HYDROCHLORIDE
     Indication: Vitamin B12
     Dates: start: 20190624, end: 20220616
  38. CYANOCOBALAMIN\FOLIC ACID\PYRIDOXINE HYDROCHLORIDE [Concomitant]
     Active Substance: CYANOCOBALAMIN\FOLIC ACID\PYRIDOXINE HYDROCHLORIDE
     Indication: Folate deficiency
  39. METAMIZOLE [Concomitant]
     Active Substance: METAMIZOLE
     Indication: Pain
  40. MCP [Concomitant]
     Active Substance: METOCLOPRAMIDE HYDROCHLORIDE
     Indication: Nausea
     Dates: start: 20191216, end: 20220616
  41. RASBURICASE [Concomitant]
     Active Substance: RASBURICASE
     Indication: Gout
     Dates: start: 20220713, end: 20220713
  42. RASBURICASE [Concomitant]
     Active Substance: RASBURICASE
     Indication: Arthritis
  43. PREDNISOLONE [Concomitant]
     Active Substance: PREDNISOLONE
     Indication: Arthritis
     Dates: start: 20220713, end: 20221213
  44. PREDNISOLONE [Concomitant]
     Active Substance: PREDNISOLONE
     Indication: Gout
  45. CANDESARTAN [Concomitant]
     Active Substance: CANDESARTAN
     Indication: Tachycardia
     Dates: start: 20230515, end: 20230609
  46. VITAMIN D [Concomitant]
     Active Substance: VITAMIN D NOS
     Dosage: 20000 INTERNATIONAL UNIT, 1/WEEK
     Dates: start: 20190624
  47. VITAMIN D [Concomitant]
     Active Substance: VITAMIN D NOS
  48. MAGNESIUM [Concomitant]
     Active Substance: MAGNESIUM
     Dosage: 400 MILLIGRAM, BID
     Dates: start: 20190624
  49. MAGNESIUM [Concomitant]
     Active Substance: MAGNESIUM
     Dosage: 1600 MILLIGRAM, QD
     Dates: start: 20220617
  50. CALCIUM CARBONATE [Concomitant]
     Active Substance: CALCIUM CARBONATE
  51. CALCITRIOL [Concomitant]
     Active Substance: CALCITRIOL
     Dosage: 0.25 MICROGRAM, BID
     Dates: start: 20221209
  52. CALCIUM GLUCONATE [Concomitant]
     Active Substance: CALCIUM GLUCONATE
     Dosage: 500 MILLIGRAM, 1/WEEK
     Dates: start: 20210219, end: 20220819
  53. CALCIUM GLUCONATE [Concomitant]
     Active Substance: CALCIUM GLUCONATE
     Dosage: 500 MILLIGRAM, 3/WEEK
     Dates: start: 20220825, end: 20221010

REACTIONS (2)
  - Hip fracture [Recovered/Resolved with Sequelae]
  - Hypomagnesaemia [Recovered/Resolved]

NARRATIVE: CASE EVENT DATE: 20220830
